FAERS Safety Report 18268272 (Version 1)
Quarter: 2020Q3

REPORT INFORMATION
  Report Type: Spontaneous
  Country: DO (occurrence: DO)
  Receive Date: 20200915
  Receipt Date: 20200915
  Transmission Date: 20201103
  Serious: Yes (Other)
  Sender: FDA-Public Use
  Company Number: DO-ASTELLAS-2020US031071

PATIENT
  Age: 82 Year
  Sex: Male

DRUGS (1)
  1. XTANDI [Suspect]
     Active Substance: ENZALUTAMIDE
     Indication: PROSTATE CANCER
     Route: 048
     Dates: start: 20200701, end: 20200901

REACTIONS (3)
  - Dysuria [Unknown]
  - Immobile [Unknown]
  - Pain [Unknown]

NARRATIVE: CASE EVENT DATE: 20200813
